FAERS Safety Report 22676107 (Version 2)
Quarter: 2025Q1

REPORT INFORMATION
  Report Type: Spontaneous
  Country: US (occurrence: US)
  Receive Date: 20230706
  Receipt Date: 20250123
  Transmission Date: 20250409
  Serious: No
  Sender: PADAGIS
  Company Number: US-PADAGIS-2023PAD00875

PATIENT

DRUGS (1)
  1. DICLOFENAC SODIUM [Suspect]
     Active Substance: DICLOFENAC SODIUM
     Indication: Medial tibial stress syndrome
     Route: 065

REACTIONS (2)
  - Asthenia [Unknown]
  - Drug ineffective for unapproved indication [Unknown]
